FAERS Safety Report 24214283 (Version 1)
Quarter: 2024Q3

REPORT INFORMATION
  Report Type: Spontaneous
  Country: US (occurrence: None)
  Receive Date: 20240814
  Receipt Date: 20240814
  Transmission Date: 20241017
  Serious: Yes (Other)
  Sender: Public
  Company Number: None

PATIENT
  Age: 1 Day
  Sex: Female
  Weight: 3.54 kg

DRUGS (1)
  1. HERBALS\MITRAGYNINE [Suspect]
     Active Substance: HERBALS\MITRAGYNINE

REACTIONS (5)
  - Agitation neonatal [None]
  - Suck-swallow breathing coordination disturbance [None]
  - Irritability [None]
  - High-pitched crying [None]
  - Drug screen positive [None]

NARRATIVE: CASE EVENT DATE: 20240608
